FAERS Safety Report 13080829 (Version 1)
Quarter: 2017Q1

REPORT INFORMATION
  Report Type: Report from Study
  Country: US (occurrence: US)
  Receive Date: 20170103
  Receipt Date: 20170103
  Transmission Date: 20170428
  Serious: Yes (Hospitalization)
  Sender: FDA-Public Use
  Company Number: US-TAKEDA-2016MPI011062

PATIENT
  Sex: Male
  Weight: 53.7 kg

DRUGS (1)
  1. IXAZOMIB [Suspect]
     Active Substance: IXAZOMIB
     Indication: PLASMA CELL MYELOMA
     Dosage: UNK
     Route: 048
     Dates: start: 201611

REACTIONS (3)
  - Neoplasm progression [Recovering/Resolving]
  - Gastrointestinal pain [Recovering/Resolving]
  - Gastrointestinal disorder [Recovering/Resolving]
